FAERS Safety Report 20780678 (Version 1)
Quarter: 2022Q2

REPORT INFORMATION
  Report Type: Spontaneous
  Country: CN (occurrence: CN)
  Receive Date: 20220504
  Receipt Date: 20220504
  Transmission Date: 20220721
  Serious: Yes (Other)
  Sender: FDA-Public Use
  Company Number: CN-SA-SAC20220502001558

PATIENT
  Age: 50 Year
  Sex: Female
  Weight: 67 kg

DRUGS (4)
  1. OXALIPLATIN [Suspect]
     Active Substance: OXALIPLATIN
     Indication: Anal cancer
     Dosage: 200 MG, QD
     Route: 041
     Dates: start: 20220425, end: 20220425
  2. OXALIPLATIN [Suspect]
     Active Substance: OXALIPLATIN
  3. CALCIUM [Concomitant]
     Active Substance: CALCIUM
     Dosage: 500MG
  4. WEI FU [Concomitant]
     Dosage: 10 MG
     Route: 030

REACTIONS (6)
  - Temperature intolerance [Recovering/Resolving]
  - Abdominal pain upper [Recovering/Resolving]
  - Pain [Unknown]
  - Hypoaesthesia [Unknown]
  - Hyperhidrosis [Recovering/Resolving]
  - Asthenia [Unknown]
